FAERS Safety Report 5459098-4 (Version None)
Quarter: 2007Q3

REPORT INFORMATION
  Report Type: 
  Country: None (occurrence: None)
  Receive Date: 20070919
  Receipt Date: 20070907
  Transmission Date: 20080115
  Serious: Yes (Hospitalization, Other)
  Sender: FDA-Public Use
  Company Number: US-GENENTECH-240807

PATIENT
  Sex: Female
  Weight: 45.351 kg

DRUGS (10)
  1. AVASTIN [Suspect]
     Indication: BREAST CANCER
     Dosage: 15 MG/KG, Q3W
     Dates: start: 20041227
  2. HERCEPTIN [Suspect]
     Indication: BREAST CANCER
     Dosage: 6 MG/KG, Q3W
     Dates: start: 20050404
  3. HERCEPTIN [Suspect]
     Dosage: 2 MG/KG, 1/WEEK
     Dates: start: 20050627
  4. HERCEPTIN [Suspect]
     Dosage: 6 MG/KG, Q3W
     Dates: start: 20051014
  5. LAPATINIB [Concomitant]
     Indication: BREAST CANCER
     Dosage: 1250 MG, QD
     Dates: start: 20070104
  6. LAPATINIB [Concomitant]
     Dosage: 1000 MG, QD
     Dates: start: 20070226
  7. XELODA [Concomitant]
     Indication: BREAST CANCER
     Dosage: 2500 MG, QD
     Dates: start: 20070104
  8. XELODA [Concomitant]
     Dosage: 1000 MG, QD
     Dates: start: 20070226
  9. LEXAPRO [Concomitant]
     Indication: TENSION HEADACHE
  10. ATROVENT [Concomitant]

REACTIONS (1)
  - PULMONARY HYPERTENSION [None]
